FAERS Safety Report 5748524-9 (Version None)
Quarter: 2008Q2

REPORT INFORMATION
  Report Type: 
  Country: None (occurrence: None)
  Receive Date: 20080523
  Receipt Date: 20080514
  Transmission Date: 20081010
  Serious: Yes (Death, Life-Threatening, Hospitalization, Disabling)
  Sender: FDA-Public Use
  Company Number: GB-PFIZER INC-2008041936

PATIENT
  Age: 69 Year
  Sex: Male
  Weight: 72 kg

DRUGS (13)
  1. ATORVASTATIN CALCIUM [Suspect]
     Route: 048
     Dates: start: 20060101, end: 20080317
  2. SEPTRIN [Suspect]
     Indication: STAPHYLOCOCCAL INFECTION
     Route: 048
     Dates: start: 20080226, end: 20080317
  3. SEPTRIN [Suspect]
     Indication: OSTEOMYELITIS
  4. ACETYLSALICYLIC ACID SRT [Concomitant]
     Route: 048
  5. CANDESARTAN [Concomitant]
     Route: 048
  6. CARBOCISTEINE [Concomitant]
     Route: 048
  7. CLOPIDOGREL [Concomitant]
     Route: 048
  8. DIGOXIN [Concomitant]
     Route: 048
  9. FUROSEMIDE [Concomitant]
     Route: 048
  10. FUSIDIC ACID [Concomitant]
     Route: 048
  11. GLICLAZIDE [Concomitant]
     Route: 048
  12. METFORMIN HCL [Concomitant]
     Route: 048
  13. OMEPRAZOLE [Concomitant]
     Route: 048

REACTIONS (4)
  - ASTHENIA [None]
  - BLOOD CREATINE PHOSPHOKINASE INCREASED [None]
  - CARDIAC ARREST [None]
  - RHABDOMYOLYSIS [None]
